FAERS Safety Report 8791979 (Version 1)
Quarter: 2012Q4

REPORT INFORMATION
  Report Type: 
  Country: FR (occurrence: FR)
  Receive Date: 20120918
  Receipt Date: 20120918
  Transmission Date: 20130627
  Serious: Yes (Hospitalization)
  Sender: FDA-Public Use
  Company Number: FR-BRISTOL-MYERS SQUIBB COMPANY-16950958

PATIENT
  Sex: Male

DRUGS (1)
  1. ONGLYZA TABS [Suspect]
     Route: 048

REACTIONS (1)
  - Angioedema [Unknown]
